FAERS Safety Report 4873660-9 (Version None)
Quarter: 2006Q1

REPORT INFORMATION
  Report Type: 
  Country: None (occurrence: None)
  Receive Date: 20060103
  Receipt Date: 20060103
  Transmission Date: 20060701
  Serious: Yes (Hospitalization, Other)
  Sender: FDA-Public Use
  Company Number: None

PATIENT
  Sex: Male
  Weight: 99.7913 kg

DRUGS (2)
  1. CIALIS [Suspect]
     Indication: ERECTILE DYSFUNCTION
     Dosage: 1 TAB AS DIRECTED PO
     Route: 048
     Dates: start: 20051128, end: 20051128
  2. CIALIS [Suspect]
     Indication: ERECTILE DYSFUNCTION
     Dosage: 1 TAB AS DIRECTED PO
     Route: 048
     Dates: start: 20051225, end: 20051225

REACTIONS (1)
  - SUBARACHNOID HAEMORRHAGE [None]
